FAERS Safety Report 6978681-8 (Version None)
Quarter: 2010Q3

REPORT INFORMATION
  Report Type: 
  Country: None (occurrence: None)
  Receive Date: 20100913
  Receipt Date: 20100831
  Transmission Date: 20110219
  Serious: Yes (Hospitalization)
  Sender: FDA-Public Use
  Company Number: A0879913A

PATIENT
  Age: 6 Year
  Sex: Female
  Weight: 21.3 kg

DRUGS (1)
  1. PAZOPANIB [Suspect]
     Indication: NEOPLASM
     Dosage: 225MGM2 PER DAY
     Route: 048
     Dates: start: 20100707

REACTIONS (5)
  - BODY TEMPERATURE INCREASED [None]
  - CHILLS [None]
  - PLEURAL EFFUSION [None]
  - PNEUMONIA [None]
  - SINUS TACHYCARDIA [None]
